FAERS Safety Report 5028401-1 (Version None)
Quarter: 2006Q2

REPORT INFORMATION
  Report Type: 
  Country: None (occurrence: None)
  Receive Date: 20060617
  Receipt Date: 20060529
  Transmission Date: 20061013
  Serious: Yes (Other)
  Sender: FDA-Public Use
  Company Number: PHBS2006TR08001

PATIENT
  Sex: Female

DRUGS (8)
  1. ZOMETA [Suspect]
     Indication: METASTASES TO BONE
     Dosage: 4 MG, EVERY 28 DAYS
     Route: 042
     Dates: start: 20030623, end: 20060422
  2. ADRIAMYCIN + CYCLOPHOSPHAMIDE [Concomitant]
     Dosage: 4 CYCLES
     Route: 065
  3. FLUOROURACIL [Concomitant]
     Dosage: 4 CYCLES
     Route: 065
  4. HERCEPTIN [Concomitant]
     Route: 065
  5. GEMZAR [Concomitant]
     Route: 065
  6. TAXOTERE [Concomitant]
     Route: 065
  7. CYCLOPHOSPHAMIDE [Concomitant]
     Route: 048
     Dates: start: 20060321
  8. ETOPOSIDE [Concomitant]
     Route: 065
     Dates: start: 20060321

REACTIONS (2)
  - OSTEONECROSIS [None]
  - TOOTH EXTRACTION [None]
